FAERS Safety Report 8187664-4 (Version None)
Quarter: 2012Q1

REPORT INFORMATION
  Report Type: 
  Country: None (occurrence: None)
  Receive Date: 20120306
  Receipt Date: 20120229
  Transmission Date: 20120608
  Serious: Yes (Other)
  Sender: FDA-Public Use
  Company Number: US-PFIZER INC-2012010772

PATIENT
  Sex: Female
  Weight: 80.726 kg

DRUGS (2)
  1. CELEBREX [Concomitant]
     Indication: ARTHRITIS
     Dosage: 200 MG, DAILY
     Route: 048
  2. DETROL LA [Suspect]
     Indication: IRRITABLE BOWEL SYNDROME
     Dosage: 4 MG, DAILY
     Route: 048

REACTIONS (2)
  - CYSTITIS [None]
  - KIDNEY INFECTION [None]
